FAERS Safety Report 13181203 (Version 1)
Quarter: 2017Q1

REPORT INFORMATION
  Report Type: Spontaneous
  Country: US (occurrence: US)
  Receive Date: 20170202
  Receipt Date: 20170202
  Transmission Date: 20170428
  Serious: No
  Sender: FDA-Public Use
  Company Number: US-SMITH AND NEPHEW, INC-2016SMT00043

PATIENT
  Age: 59 Year
  Sex: Male
  Weight: 136.5 kg

DRUGS (5)
  1. UNSPECIFIED DIABETIC MEDICATIONS [Concomitant]
     Active Substance: UNSPECIFIED INGREDIENT
  2. REGRANEX [Suspect]
     Active Substance: BECAPLERMIN
     Indication: WOUND
     Dosage: UNK
     Dates: start: 20160109
  3. UNSPECIFIED BLOOD PRESSURE MEDICATIONS [Concomitant]
  4. UNSPECIFIED PAIN PILLS [Concomitant]
     Active Substance: UNSPECIFIED INGREDIENT
  5. UNSPECIFIED DEPRESSION MEDICATIONS [Concomitant]

REACTIONS (2)
  - Drug effect incomplete [Not Recovered/Not Resolved]
  - Application site pain [Recovering/Resolving]

NARRATIVE: CASE EVENT DATE: 201501
